FAERS Safety Report 5337140-9 (Version None)
Quarter: 2007Q2

REPORT INFORMATION
  Report Type: 
  Country: None (occurrence: None)
  Receive Date: 20070523
  Receipt Date: 20070510
  Transmission Date: 20071010
  Serious: Yes (Hospitalization)
  Sender: FDA-Public Use
  Company Number: 2007-158532-NL

PATIENT
  Age: 37 Year
  Sex: Female

DRUGS (3)
  1. MIRTAZAPINE [Suspect]
     Indication: DEPRESSION
     Dosage: 7.5 MG BID ORAL
     Route: 048
     Dates: start: 20040101
  2. METHADONE HYDROCHLORIDE [Suspect]
     Indication: DRUG ABUSER
     Dosage: 7.5 MG ORAL
     Route: 048
     Dates: start: 20051101, end: 20060101
  3. OXAZEPAM [Concomitant]

REACTIONS (3)
  - ABORTION SPONTANEOUS [None]
  - DRUG EXPOSURE DURING PREGNANCY [None]
  - PREGNANCY [None]
